FAERS Safety Report 14475060 (Version 1)
Quarter: 2018Q1

REPORT INFORMATION
  Report Type: Spontaneous
  Country: US (occurrence: US)
  Receive Date: 20180131
  Receipt Date: 20180131
  Transmission Date: 20180509
  Serious: Yes (Other)
  Sender: FDA-Public Use
  Company Number: None

PATIENT
  Age: 21 Year
  Sex: Female
  Weight: 73.35 kg

DRUGS (4)
  1. METFORMIN [Concomitant]
     Active Substance: METFORMIN HYDROCHLORIDE
  2. LITHIUM. [Concomitant]
     Active Substance: LITHIUM
  3. DIVALPROEX [Suspect]
     Active Substance: DIVALPROEX SODIUM
     Indication: BIPOLAR I DISORDER
     Dosage: AT BEDTIME
     Route: 048
     Dates: start: 20180112, end: 20180126
  4. OLANZAPINE. [Concomitant]
     Active Substance: OLANZAPINE

REACTIONS (3)
  - Suicidal ideation [None]
  - Therapy cessation [None]
  - Abdominal discomfort [None]

NARRATIVE: CASE EVENT DATE: 20180119
